FAERS Safety Report 8807116 (Version 1)
Quarter: 2012Q4

REPORT INFORMATION
  Report Type: 
  Country: CH (occurrence: CH)
  Receive Date: 20120925
  Receipt Date: 20120925
  Transmission Date: 20130627
  Serious: Yes (Other)
  Sender: FDA-Public Use
  Company Number: CH-PFIZER INC-2012225085

PATIENT
  Age: 57 Year
  Sex: Female
  Weight: 67 kg

DRUGS (5)
  1. VFEND [Suspect]
     Indication: FUNGAL INFECTION
     Dosage: 400 mg, 1x/day
     Route: 048
     Dates: start: 201012, end: 20110811
  2. SANDIMMUN [Concomitant]
  3. PENTAMIDINE [Concomitant]
  4. NEXIUM [Concomitant]
  5. VALTREX [Concomitant]

REACTIONS (4)
  - Arthralgia [Recovered/Resolved]
  - Arthralgia [Recovered/Resolved]
  - Bone disorder [Recovered/Resolved]
  - Fluoride increased [Recovered/Resolved]
